FAERS Safety Report 10645915 (Version 2)
Quarter: 2014Q4

REPORT INFORMATION
  Report Type: Spontaneous
  Country: CH (occurrence: CH)
  Receive Date: 20141211
  Receipt Date: 20141211
  Transmission Date: 20150529
  Serious: Yes (Other)
  Sender: FDA-Public Use
  Company Number: CH-CELGENE-151-21880-14044686

PATIENT
  Age: 41 Year
  Sex: Female
  Weight: 88 kg

DRUGS (9)
  1. MONUROL [Concomitant]
     Active Substance: FOSFOMYCIN TROMETHAMINE
     Indication: URINARY TRACT INFECTION
     Route: 065
     Dates: start: 201403, end: 201403
  2. REVLIMID [Suspect]
     Active Substance: LENALIDOMIDE
     Indication: ACCIDENTAL EXPOSURE TO PRODUCT
     Route: 048
  3. DAFNEGIL [Concomitant]
     Indication: FUNGAL INFECTION
     Route: 065
     Dates: start: 201405
  4. FLAGYL [Concomitant]
     Active Substance: METRONIDAZOLE\METRONIDAZOLE HYDROCHLORIDE
     Indication: FUNGAL INFECTION
     Route: 065
     Dates: start: 201406
  5. THALIDOMIDE [Suspect]
     Active Substance: THALIDOMIDE
     Indication: ACCIDENTAL EXPOSURE TO PRODUCT
     Route: 048
  6. POMALIDOMIDE [Suspect]
     Active Substance: POMALIDOMIDE
     Indication: ACCIDENTAL EXPOSURE TO PRODUCT
     Route: 048
  7. ZINNAT [Concomitant]
     Active Substance: CEFUROXIME AXETIL
     Indication: SYNOVIAL CYST
     Route: 065
     Dates: start: 201405
  8. GYNO-CANESTEN COMBI PACK [Concomitant]
     Indication: FUNGAL INFECTION
     Route: 065
     Dates: start: 201409
  9. CORTISOL [Concomitant]
     Active Substance: HYDROCORTISONE
     Indication: FUNGAL INFECTION
     Route: 065
     Dates: start: 201403

REACTIONS (2)
  - Exposure during pregnancy [Unknown]
  - Exposure during pregnancy [Unknown]

NARRATIVE: CASE EVENT DATE: 20140417
